FAERS Safety Report 6103509-8 (Version None)
Quarter: 2009Q1

REPORT INFORMATION
  Report Type: 
  Country: None (occurrence: None)
  Receive Date: 20090305
  Receipt Date: 20090202
  Transmission Date: 20090719
  Serious: No
  Sender: FDA-Public Use
  Company Number: US-BAYER-200810885BCC

PATIENT
  Age: 81 Year
  Sex: Female
  Weight: 68 kg

DRUGS (9)
  1. ALEVE [Suspect]
     Indication: ARTHRITIS
     Dosage: TOTAL DAILY DOSE: 220 MG  UNIT DOSE: 220 MG
     Route: 048
     Dates: start: 20080101
  2. ALEVE [Suspect]
     Dosage: TOTAL DAILY DOSE: 220 MG  UNIT DOSE: 220 MG
     Route: 048
     Dates: start: 20080101
  3. PREMARIN [Concomitant]
  4. ACTOS [Concomitant]
  5. METOPROLOL SUCCINATE [Concomitant]
  6. SIMVASTATIN [Concomitant]
  7. LISINOPRIL [Concomitant]
  8. CENTRUM SILVER [Concomitant]
  9. ASPIRIN [Concomitant]

REACTIONS (3)
  - ABDOMINAL PAIN UPPER [None]
  - MOBILITY DECREASED [None]
  - PAIN [None]
